FAERS Safety Report 20455656 (Version 1)
Quarter: 2022Q1

REPORT INFORMATION
  Report Type: Spontaneous
  Country: US (occurrence: None)
  Receive Date: 20220210
  Receipt Date: 20220210
  Transmission Date: 20220423
  Serious: No
  Sender: FDA-Public Use
  Company Number: None

PATIENT
  Age: 65 Year
  Sex: Male
  Weight: 108 kg

DRUGS (2)
  1. CLARITHROMYCIN [Suspect]
     Active Substance: CLARITHROMYCIN
     Indication: Product used for unknown indication
     Dosage: FREQUENCY : TWICE A DAY;?
     Route: 048
     Dates: start: 20220114, end: 20220119
  2. CLARITHROMYCIN [Suspect]
     Active Substance: CLARITHROMYCIN
     Dates: start: 20220114

REACTIONS (3)
  - Mental status changes [None]
  - Inhibitory drug interaction [None]
  - Drug level increased [None]

NARRATIVE: CASE EVENT DATE: 20220119
